FAERS Safety Report 21824878 (Version 1)
Quarter: 2023Q1

REPORT INFORMATION
  Report Type: Spontaneous
  Country: US (occurrence: US)
  Receive Date: 20230105
  Receipt Date: 20230105
  Transmission Date: 20230418
  Serious: Yes (Hospitalization, Other)
  Sender: FDA-Public Use
  Company Number: US-ALVOGEN-2022088905

PATIENT
  Age: 83 Year
  Sex: Female

DRUGS (10)
  1. NITROFURANTOIN [Suspect]
     Active Substance: NITROFURANTOIN
     Indication: Product used for unknown indication
  2. HYDROCODONE [Suspect]
     Active Substance: HYDROCODONE
     Indication: Product used for unknown indication
  3. OXYCODONE [Suspect]
     Active Substance: OXYCODONE
     Indication: Product used for unknown indication
  4. GABAPENTIN [Suspect]
     Active Substance: GABAPENTIN
     Indication: Product used for unknown indication
     Dosage: 300 MGS
  5. DECADRON [Suspect]
     Active Substance: DEXAMETHASONE
     Indication: Product used for unknown indication
     Dates: start: 1996
  6. PANMYCIN [Suspect]
     Active Substance: TETRACYCLINE HYDROCHLORIDE
     Indication: Product used for unknown indication
  7. CODEINE [Suspect]
     Active Substance: CODEINE
     Indication: Product used for unknown indication
  8. MORPHINE [Suspect]
     Active Substance: MORPHINE
     Indication: Product used for unknown indication
  9. TRAMADOL [Suspect]
     Active Substance: TRAMADOL
     Indication: Product used for unknown indication
  10. METRONIDAZOLE [Suspect]
     Active Substance: METRONIDAZOLE
     Indication: Product used for unknown indication

REACTIONS (54)
  - Leukopenia [Unknown]
  - Condition aggravated [Unknown]
  - Thrombocytopenia [Unknown]
  - Urinary retention [Unknown]
  - Illness [Unknown]
  - Diabetes insipidus [Unknown]
  - Anaemia [Unknown]
  - Hepatic cyst [Not Recovered/Not Resolved]
  - Nausea [Unknown]
  - Dizziness [Unknown]
  - Euphoric mood [Unknown]
  - Urinary incontinence [Unknown]
  - Constipation [Unknown]
  - Somnolence [Unknown]
  - Urticaria [Unknown]
  - Pruritus [Recovered/Resolved]
  - Vomiting [Unknown]
  - Hepatic enzyme abnormal [Unknown]
  - Blood bilirubin abnormal [Unknown]
  - Sneezing [Unknown]
  - Nasal congestion [Unknown]
  - Rhinorrhoea [Unknown]
  - Feeling abnormal [Unknown]
  - Rash [Unknown]
  - Erythema [Unknown]
  - Malaise [Unknown]
  - Paraesthesia [Unknown]
  - Joint swelling [Unknown]
  - Vulvovaginal burning sensation [Unknown]
  - Heart rate increased [Unknown]
  - Diarrhoea [Unknown]
  - Chest discomfort [Unknown]
  - Dyspnoea [Unknown]
  - Type I hypersensitivity [Unknown]
  - Blister [Unknown]
  - Urethritis noninfective [Unknown]
  - Skin irritation [Unknown]
  - Eye irritation [Unknown]
  - Vision blurred [Unknown]
  - Syncope [Unknown]
  - Renal failure [Unknown]
  - Weight increased [Unknown]
  - Walking disability [Unknown]
  - Blood pressure systolic increased [Unknown]
  - Photophobia [Unknown]
  - Deafness [Unknown]
  - Increased tendency to bruise [Unknown]
  - Condition aggravated [Unknown]
  - Headache [Unknown]
  - Drug intolerance [Unknown]
  - Balance disorder [Unknown]
  - Ear discomfort [Unknown]
  - Dysacusis [Unknown]
  - Disturbance in attention [Unknown]

NARRATIVE: CASE EVENT DATE: 20170805
